FAERS Safety Report 5751686-0 (Version None)
Quarter: 2008Q2

REPORT INFORMATION
  Report Type: 
  Country: None (occurrence: None)
  Receive Date: 20080528
  Receipt Date: 20080522
  Transmission Date: 20081010
  Serious: Yes (Death, Other)
  Sender: FDA-Public Use
  Company Number: PHHY2008JP08009

PATIENT
  Age: 75 Year
  Sex: Male

DRUGS (2)
  1. SANDOSTATIN [Suspect]
     Indication: ACROMEGALY
     Dates: start: 20030201
  2. SANDOSTATIN LAR [Suspect]
     Indication: ACROMEGALY

REACTIONS (5)
  - DISSEMINATED INTRAVASCULAR COAGULATION [None]
  - FIBROSIS [None]
  - GASTRIC CANCER [None]
  - HYPOTHALAMO-PITUITARY DISORDER [None]
  - INTESTINAL OBSTRUCTION [None]
